FAERS Safety Report 10204662 (Version 1)
Quarter: 2014Q2

REPORT INFORMATION
  Report Type: Spontaneous
  Country: US (occurrence: None)
  Receive Date: 20140527
  Receipt Date: 20140527
  Transmission Date: 20141212
  Serious: Yes (Hospitalization)
  Sender: FDA-Public Use
  Company Number: None

PATIENT
  Age: 73 Year
  Sex: Male

DRUGS (5)
  1. CEFEPIME [Suspect]
     Indication: PNEUMONIA
     Route: 002
     Dates: start: 20120408, end: 20120414
  2. HEPARIN [Concomitant]
  3. CARVEDILOL [Concomitant]
  4. INSULIN [Concomitant]
  5. SIMVASTATIN [Concomitant]

REACTIONS (3)
  - Fluid overload [None]
  - Haemodialysis [None]
  - Renal failure acute [None]
